FAERS Safety Report 6728227-4 (Version None)
Quarter: 2010Q2

REPORT INFORMATION
  Report Type: 
  Country: None (occurrence: None)
  Receive Date: 20100517
  Receipt Date: 20100511
  Transmission Date: 20101027
  Serious: Yes (Other)
  Sender: FDA-Public Use
  Company Number: US-BRISTOL-MYERS SQUIBB COMPANY-15101769

PATIENT
  Age: 65 Year
  Sex: Male

DRUGS (12)
  1. CARBOPLATIN [Suspect]
     Indication: ACUTE MYELOID LEUKAEMIA
     Dosage: 21MAR-23MAR10;23MAR10-ONG
     Route: 042
     Dates: start: 20100321
  2. TOPOTECAN [Suspect]
     Indication: ACUTE MYELOID LEUKAEMIA
     Route: 042
     Dates: start: 20100321
  3. VANCOMYCIN [Suspect]
  4. ZOSYN [Suspect]
  5. MEROPENEM [Suspect]
  6. LINEZOLID [Suspect]
  7. CLINDAMYCIN [Suspect]
  8. MICAFUNGIN SODIUM [Suspect]
  9. AMBISOME [Suspect]
  10. VORICONAZOLE [Suspect]
  11. FLAGYL [Suspect]
  12. ACYCLOVIR [Suspect]

REACTIONS (8)
  - CONFUSIONAL STATE [None]
  - EXFOLIATIVE RASH [None]
  - HYPERBILIRUBINAEMIA [None]
  - HYPOCALCAEMIA [None]
  - HYPONATRAEMIA [None]
  - OEDEMA PERIPHERAL [None]
  - RENAL FAILURE [None]
  - SEPSIS [None]
